FAERS Safety Report 8775817 (Version 2)
Quarter: 2012Q4

REPORT INFORMATION
  Report Type: 
  Country: JP (occurrence: JP)
  Receive Date: 20120910
  Receipt Date: 20121008
  Transmission Date: 20130627
  Serious: Yes (Death, Other)
  Sender: FDA-Public Use
  Company Number: JP-ROCHE-1086089

PATIENT
  Age: 79 Year
  Sex: Female
  Weight: 55 kg

DRUGS (14)
  1. AVASTIN [Suspect]
     Indication: LUNG ADENOCARCINOMA METASTATIC
     Route: 041
     Dates: start: 20120629, end: 20120629
  2. AVASTIN [Suspect]
     Indication: LUNG ADENOCARCINOMA METASTATIC
     Route: 041
     Dates: start: 20120803, end: 20120803
  3. CARBOPLATIN [Concomitant]
     Indication: LUNG ADENOCARCINOMA METASTATIC
     Route: 041
     Dates: start: 20120629, end: 20120629
  4. CARBOPLATIN [Concomitant]
     Indication: LUNG ADENOCARCINOMA METASTATIC
     Route: 041
     Dates: start: 20120803, end: 20120803
  5. PACLITAXEL [Concomitant]
     Indication: LUNG ADENOCARCINOMA METASTATIC
     Route: 041
     Dates: start: 20120629, end: 20120629
  6. PACLITAXEL [Concomitant]
     Indication: LUNG ADENOCARCINOMA METASTATIC
     Route: 041
     Dates: start: 20120803, end: 20120803
  7. AMLODIPINE [Concomitant]
     Indication: HYPERTENSION
     Route: 048
     Dates: end: 201207
  8. AMLODIPINE [Concomitant]
     Indication: HYPERTENSION
     Route: 048
     Dates: start: 20120723, end: 2012
  9. BIFUROXIN [Concomitant]
     Route: 048
     Dates: end: 20120704
  10. KARY UNI [Concomitant]
     Indication: CATARACT
     Dosage: Dosage is uncertain.
     Route: 047
     Dates: end: 2012
  11. FLUOROMETHOLONE [Concomitant]
     Indication: CATARACT
     Dosage: Dosage is uncertain.
     Route: 047
     Dates: end: 2012
  12. DIHYDROERGOTOXINE MESILATE [Concomitant]
     Indication: HYPERTENSION
     Route: 065
     Dates: end: 20120703
  13. FAMOTIDINE [Concomitant]
     Route: 048
     Dates: end: 20120703
  14. FAMOTIDINE [Concomitant]
     Route: 048
     Dates: start: 20120709, end: 2012

REACTIONS (11)
  - Gastrointestinal haemorrhage [Recovered/Resolved]
  - Constipation [Recovered/Resolved]
  - Abdominal pain [Recovered/Resolved]
  - Blood pressure increased [Not Recovered/Not Resolved]
  - Haemoptysis [Recovered/Resolved]
  - Oedema [Unknown]
  - Decreased appetite [Unknown]
  - Malaise [Unknown]
  - Metastases to central nervous system [Fatal]
  - Cerebral infarction [Fatal]
  - Death [Fatal]
